FAERS Safety Report 5444839-2 (Version None)
Quarter: 2007Q3

REPORT INFORMATION
  Report Type: 
  Country: None (occurrence: None)
  Receive Date: 20070906
  Receipt Date: 20070828
  Transmission Date: 20080115
  Serious: Yes (Life-Threatening, Hospitalization)
  Sender: FDA-Public Use
  Company Number: FR-ROCHE-466358

PATIENT
  Age: 57 Year
  Sex: Female
  Weight: 55 kg

DRUGS (3)
  1. XELODA [Suspect]
     Indication: DRUG USE FOR UNKNOWN INDICATION
     Dosage: FREQUENCY: PER CYCLE.
     Route: 048
     Dates: start: 20050601, end: 20060701
  2. TAXOTERE [Suspect]
     Indication: DRUG USE FOR UNKNOWN INDICATION
     Dosage: FREQUENCY: PER CYCLE.
     Route: 042
     Dates: start: 20041231, end: 20050419
  3. FARMORUBICINE [Suspect]
     Indication: DRUG USE FOR UNKNOWN INDICATION
     Dosage: FREQUENCY: PER CYCLE.
     Route: 042
     Dates: start: 20041230, end: 20050419

REACTIONS (1)
  - ACUTE LEUKAEMIA [None]
